FAERS Safety Report 5143479-2 (Version None)
Quarter: 2006Q4

REPORT INFORMATION
  Report Type: 
  Country: None (occurrence: None)
  Receive Date: 20061103
  Receipt Date: 20031125
  Transmission Date: 20070319
  Serious: Yes (Hospitalization)
  Sender: FDA-Public Use
  Company Number: JP-GLAXOSMITHKLINE-B0316231A

PATIENT
  Age: 60 Year
  Sex: Female

DRUGS (21)
  1. VALTREX [Suspect]
     Indication: TRIGEMINAL NEURALGIA
     Route: 048
     Dates: start: 20031120, end: 20031123
  2. ZOVIRAX [Suspect]
     Indication: TRIGEMINAL NEURALGIA
     Dosage: 250MG PER DAY
     Route: 042
     Dates: start: 20031120, end: 20031121
  3. MECOBALAMIN [Concomitant]
     Indication: TRIGEMINAL NEURALGIA
     Dosage: 1500MCG PER DAY
     Route: 048
     Dates: start: 20031120, end: 20031124
  4. AFLOQUALONE [Concomitant]
     Indication: TRIGEMINAL NEURALGIA
     Dosage: 40MG PER DAY
     Route: 048
     Dates: start: 20031120, end: 20031124
  5. ALLOPURINOL [Concomitant]
     Indication: HYPERURICAEMIA
     Dosage: 100MG PER DAY
     Route: 048
  6. TRIAZOLAM [Concomitant]
     Indication: INSOMNIA
     Dosage: .25MG PER DAY
     Route: 048
  7. PRECIPITATED CALCIUM CARBONATE [Concomitant]
     Indication: HYPERPHOSPHATAEMIA
     Dosage: 3000MG PER DAY
     Route: 048
     Dates: start: 20030811
  8. AZULENE SULFONATE SODIUM L-GLUTAMINE [Concomitant]
     Indication: DUODENAL ULCER
     Dosage: 2G PER DAY
     Route: 048
     Dates: start: 19940712
  9. TEPRENONE [Concomitant]
     Indication: DUODENAL ULCER
     Dosage: 1.5G PER DAY
     Route: 048
     Dates: start: 19940712
  10. CAMOSTAT MESILATE [Concomitant]
     Indication: PANCREATITIS CHRONIC
     Dosage: 600MG PER DAY
     Route: 048
     Dates: start: 19940712
  11. ITOPRIDE HYDROCHLORIDE [Concomitant]
     Indication: GASTRITIS
     Dosage: 100MG PER DAY
     Route: 048
     Dates: start: 20030207
  12. SENNOSIDES A + B [Concomitant]
     Indication: CONSTIPATION
     Dosage: 2G PER DAY
     Route: 048
     Dates: start: 19940712
  13. LAFUTIDINE [Concomitant]
     Indication: DUODENAL ULCER
     Dosage: 10MG PER DAY
     Route: 048
     Dates: start: 20021227
  14. SIMETRIDE [Concomitant]
     Indication: TRIGEMINAL NEURALGIA
     Dosage: 1.5G PER DAY
     Route: 048
     Dates: start: 20031120, end: 20031124
  15. ANHYDROUS CAFFEINE [Concomitant]
     Indication: TRIGEMINAL NEURALGIA
     Dosage: 1.5G PER DAY
     Route: 048
     Dates: start: 20031120, end: 20031124
  16. CALTAN [Concomitant]
     Indication: BLOOD PHOSPHORUS INCREASED
     Dosage: 3000MG PER DAY
     Route: 048
     Dates: start: 20030811
  17. ALLOPURINOL [Concomitant]
     Indication: HYPERURICAEMIA
     Dosage: 100MG PER DAY
     Route: 048
  18. HALCION [Concomitant]
     Indication: INSOMNIA
     Dosage: .25MG PER DAY
     Route: 048
  19. STOGAR [Concomitant]
     Indication: NEURITIS
     Dosage: 10MG PER DAY
     Route: 048
     Dates: start: 20021227, end: 20031124
  20. GANATON [Concomitant]
     Indication: GASTRITIS
     Dosage: 100MG PER DAY
     Route: 048
     Dates: start: 20030207
  21. METHYCOOL [Concomitant]
     Indication: NEURITIS
     Dosage: 1500MCG PER DAY
     Route: 048
     Dates: start: 20031120, end: 20031124

REACTIONS (18)
  - AFFECT LABILITY [None]
  - AGITATION [None]
  - ANAEMIA [None]
  - BLOOD CREATININE INCREASED [None]
  - BLOOD UREA INCREASED [None]
  - CONFUSIONAL STATE [None]
  - CRYING [None]
  - DRUG TOXICITY [None]
  - DYSARTHRIA [None]
  - DYSGEUSIA [None]
  - DYSKINESIA [None]
  - IRRITABILITY [None]
  - MOOD ALTERED [None]
  - MUSCULAR WEAKNESS [None]
  - NERVOUS SYSTEM DISORDER [None]
  - OVERDOSE [None]
  - RESTLESSNESS [None]
  - SPEECH DISORDER [None]
